FAERS Safety Report 4860437-3 (Version None)
Quarter: 2005Q4

REPORT INFORMATION
  Report Type: 
  Country: None (occurrence: None)
  Receive Date: 20051215
  Receipt Date: 20051202
  Transmission Date: 20060501
  Serious: Yes (Death, Other)
  Sender: FDA-Public Use
  Company Number: 2005137884

PATIENT
  Age: 3 Year
  Sex: Male

DRUGS (8)
  1. GENOTROPIN [Suspect]
     Indication: SMALL FOR DATES BABY
     Dosage: DAILY, SUBCUTANEOUS
     Route: 058
     Dates: start: 20041102, end: 20050930
  2. LEVOXYL [Concomitant]
  3. SINGULAIR [Concomitant]
  4. FLOVENT [Concomitant]
  5. NASONEX [Concomitant]
  6. CLARITIN [Concomitant]
  7. SEPTRA [Concomitant]
  8. ZYRTEC [Concomitant]

REACTIONS (5)
  - CARDIO-RESPIRATORY ARREST [None]
  - CYANOSIS [None]
  - FEELING COLD [None]
  - MALAISE [None]
  - PULMONARY HYPERTENSION [None]
